FAERS Safety Report 4677571-3 (Version None)
Quarter: 2005Q2

REPORT INFORMATION
  Report Type: 
  Country: None (occurrence: None)
  Receive Date: 20050526
  Receipt Date: 20050526
  Transmission Date: 20051028
  Serious: Yes (Hospitalization)
  Sender: FDA-Public Use
  Company Number: None

PATIENT
  Age: 72 Year
  Sex: Male
  Weight: 131.5431 kg

DRUGS (17)
  1. MS CONTIN [Suspect]
     Indication: PAIN
     Dosage: 120MG ONCE
  2. ASPIRIN [Concomitant]
  3. ATENOLOL [Concomitant]
  4. CYCLOBENZAPRINE HCL [Concomitant]
  5. FELODIPINE [Concomitant]
  6. FINASTERIDE [Concomitant]
  7. FOSINOPRIL [Concomitant]
  8. GLIPIZIDE [Concomitant]
  9. HYDROCHLOROTHIAZIDE [Concomitant]
  10. OMEPRAZOLE [Concomitant]
  11. OXYBUTYNIN [Concomitant]
  12. QUETIAPINE [Concomitant]
  13. RISPERIDONE [Concomitant]
  14. SIMVASTATIN [Concomitant]
  15. TERAZOSIN [Concomitant]
  16. TOPIRAMATE [Concomitant]
  17. VENLAFAXINE HCL [Concomitant]

REACTIONS (5)
  - APHASIA [None]
  - DEPRESSED LEVEL OF CONSCIOUSNESS [None]
  - INCORRECT DOSE ADMINISTERED [None]
  - MEDICATION ERROR [None]
  - SOMNOLENCE [None]
